FAERS Safety Report 9997705 (Version 2)
Quarter: 2014Q1

REPORT INFORMATION
  Report Type: Spontaneous
  Country: US (occurrence: US)
  Receive Date: 20140311
  Receipt Date: 20140318
  Transmission Date: 20141002
  Serious: No
  Sender: FDA-Public Use
  Company Number: US-PFIZER INC-2014067604

PATIENT
  Age: 49 Year
  Sex: Male

DRUGS (1)
  1. ALTACE [Suspect]
     Indication: HYPERTENSION
     Dosage: 5 MG, 1X/DAY
     Route: 048
     Dates: start: 2010

REACTIONS (3)
  - Blood pressure inadequately controlled [Not Recovered/Not Resolved]
  - Poor quality drug administered [Unknown]
  - Product quality issue [Unknown]
